FAERS Safety Report 8789152 (Version 1)
Quarter: 2012Q4

REPORT INFORMATION
  Report Type: Spontaneous
  Country: US (occurrence: None)
  Receive Date: 20120910
  Receipt Date: 20120910
  Transmission Date: 20130627
  Serious: Yes (Other)
  Sender: FDA-Public Use
  Company Number: None

PATIENT
  Age: 90 Year
  Sex: Female
  Weight: 42 kg

DRUGS (1)
  1. DIPHENHYDRAMINE [Suspect]
     Indication: SEDATIVE THERAPY
     Route: 042
     Dates: start: 20120811

REACTIONS (6)
  - Muscle rigidity [None]
  - Tremor [None]
  - Hypoxia [None]
  - Agitation [None]
  - Heart rate increased [None]
  - Aggression [None]
